FAERS Safety Report 18998984 (Version 2)
Quarter: 2021Q2

REPORT INFORMATION
  Report Type: Report from Study
  Country: CO (occurrence: CO)
  Receive Date: 20210312
  Receipt Date: 20210412
  Transmission Date: 20210717
  Serious: Yes (Hospitalization, Other)
  Sender: FDA-Public Use
  Company Number: CO-JNJFOC-20210310198

PATIENT
  Age: 20 Year
  Sex: Female
  Weight: 70 kg

DRUGS (4)
  1. CHLOROQUINE. [Concomitant]
     Active Substance: CHLOROQUINE
  2. SIMPONI [Suspect]
     Active Substance: GOLIMUMAB
     Indication: ANKYLOSING SPONDYLITIS
     Route: 058
     Dates: start: 20200916
  3. ACETAMINOPHEN. [Concomitant]
     Active Substance: ACETAMINOPHEN
  4. SULFASALAZINE. [Concomitant]
     Active Substance: SULFASALAZINE

REACTIONS (5)
  - Urinary tract infection [Unknown]
  - Allergic respiratory disease [Recovering/Resolving]
  - Haematoma [Not Recovered/Not Resolved]
  - Asthmatic crisis [Recovering/Resolving]
  - Injury [Not Recovered/Not Resolved]

NARRATIVE: CASE EVENT DATE: 20210217
